FAERS Safety Report 16372223 (Version 2)
Quarter: 2024Q3

REPORT INFORMATION
  Report Type: Other
  Country: DE (occurrence: DE)
  Receive Date: 20190530
  Receipt Date: 20240828
  Transmission Date: 20241017
  Serious: Yes (Hospitalization)
  Sender: NOVA LABORATORIES
  Company Number: DE-RARE DISEASE THERAPEUTICS, INC.-2067591

PATIENT
  Age: 34 Year
  Sex: Female

DRUGS (18)
  1. PURIXAN [Suspect]
     Active Substance: MERCAPTOPURINE
     Indication: B-cell type acute leukaemia
     Route: 048
  2. LEUCOVORIN CALCIUM [Suspect]
     Active Substance: LEUCOVORIN CALCIUM
     Route: 065
  3. FILGRASTIM [Suspect]
     Active Substance: FILGRASTIM
     Route: 058
  4. ETOPOSIDE [Suspect]
     Active Substance: ETOPOSIDE
     Route: 042
  5. VINDESINE [Suspect]
     Active Substance: VINDESINE
     Route: 042
  6. MESNA [Suspect]
     Active Substance: MESNA
     Route: 042
  7. PEGASPARGASE [Suspect]
     Active Substance: PEGASPARGASE
     Route: 042
  8. RITUXIMAB [Suspect]
     Active Substance: RITUXIMAB
     Route: 042
  9. DAUNORUBICIN [Suspect]
     Active Substance: DAUNORUBICIN
     Route: 042
  10. CYCLOPHOSPHAMIDE [Suspect]
     Active Substance: CYCLOPHOSPHAMIDE
     Route: 042
  11. CYCLOPHOSPHAMIDE [Suspect]
     Active Substance: CYCLOPHOSPHAMIDE
     Route: 042
  12. METHOTREXATE [Suspect]
     Active Substance: METHOTREXATE
     Route: 042
  13. METHOTREXATE [Suspect]
     Active Substance: METHOTREXATE
     Route: 042
  14. METHOTREXATE [Suspect]
     Active Substance: METHOTREXATE
     Route: 037
  15. VINCRISTINE [Suspect]
     Active Substance: VINCRISTINE
     Route: 042
  16. DEXAMETHASONE [Suspect]
     Active Substance: DEXAMETHASONE
     Route: 048
  17. CYTARABINE [Suspect]
     Active Substance: CYTARABINE
     Route: 042
  18. CYTARABINE [Suspect]
     Active Substance: CYTARABINE
     Route: 042

REACTIONS (3)
  - Foetal growth restriction [Recovered/Resolved]
  - Exposure during pregnancy [Recovered/Resolved]
  - Premature delivery [Recovered/Resolved]
